FAERS Safety Report 20085079 (Version 5)
Quarter: 2022Q1

REPORT INFORMATION
  Report Type: Spontaneous
  Country: BE (occurrence: BE)
  Receive Date: 20211118
  Receipt Date: 20220324
  Transmission Date: 20220423
  Serious: Yes (Death, Life-Threatening, Hospitalization, Other)
  Sender: FDA-Public Use
  Company Number: BE-PFIZER INC-202101093759

PATIENT
  Age: 33 Year
  Sex: Male

DRUGS (24)
  1. FLUOROURACIL [Suspect]
     Active Substance: FLUOROURACIL
     Indication: Adenocarcinoma of colon
     Dosage: UNK
     Route: 042
     Dates: start: 201306, end: 201311
  2. FLUOROURACIL [Suspect]
     Active Substance: FLUOROURACIL
     Dosage: UNK (PART OF DE GRAMONT REGIMEN)
     Route: 042
     Dates: start: 2015, end: 2015
  3. FLUOROURACIL [Suspect]
     Active Substance: FLUOROURACIL
     Dosage: UNK
     Route: 042
     Dates: start: 2013
  4. FLUOROURACIL [Suspect]
     Active Substance: FLUOROURACIL
     Dosage: UNK (PART OF DE GRAMONT REGIMEN)
     Route: 041
     Dates: start: 2015, end: 2015
  5. FLUOROURACIL [Suspect]
     Active Substance: FLUOROURACIL
     Dosage: UNK
     Route: 041
     Dates: start: 2013
  6. IRINOTECAN [Suspect]
     Active Substance: IRINOTECAN
     Indication: Adenocarcinoma of colon
     Dosage: UNK, CYCLE
     Route: 042
     Dates: start: 2014
  7. IRINOTECAN [Suspect]
     Active Substance: IRINOTECAN
     Dosage: UNK
     Route: 042
     Dates: start: 201405, end: 201504
  8. IRINOTECAN [Suspect]
     Active Substance: IRINOTECAN
     Dosage: UNK, CYCLE
     Route: 041
     Dates: start: 2014
  9. OXALIPLATIN [Suspect]
     Active Substance: OXALIPLATIN
     Indication: Adenocarcinoma of colon
     Dosage: UNK, CYCLE
     Route: 042
     Dates: start: 2013, end: 2013
  10. OXALIPLATIN [Suspect]
     Active Substance: OXALIPLATIN
     Dosage: UNK
     Dates: start: 201306, end: 2013
  11. OXALIPLATIN [Suspect]
     Active Substance: OXALIPLATIN
     Dosage: UNK, CYCLE
     Route: 041
     Dates: start: 2013, end: 2013
  12. NIVOLUMAB [Suspect]
     Active Substance: NIVOLUMAB
     Indication: Adenocarcinoma of colon
     Dosage: UNK
     Route: 065
     Dates: start: 201809, end: 201907
  13. PEMBROLIZUMAB [Suspect]
     Active Substance: PEMBROLIZUMAB
     Indication: Adenocarcinoma of colon
     Dosage: UNK
     Dates: start: 201512, end: 201711
  14. PEMBROLIZUMAB [Suspect]
     Active Substance: PEMBROLIZUMAB
     Dosage: UNK, CYCLE (35 CYCLES RECEIVED)
     Route: 042
     Dates: end: 201711
  15. PEMBROLIZUMAB [Suspect]
     Active Substance: PEMBROLIZUMAB
     Dosage: UNK, CYCLE (35 CYCLES RECEIVED)
     Route: 041
     Dates: end: 201711
  16. BEVACIZUMAB [Suspect]
     Active Substance: BEVACIZUMAB
     Indication: Adenocarcinoma of colon
     Dosage: UNK
     Dates: start: 201405, end: 201510
  17. BEVACIZUMAB [Suspect]
     Active Substance: BEVACIZUMAB
     Dosage: UNK
  18. IPILIMUMAB [Suspect]
     Active Substance: IPILIMUMAB
     Indication: Adenocarcinoma of colon
     Dosage: UNK
     Route: 065
     Dates: start: 201809, end: 201907
  19. LEUCOVORIN CALCIUM [Suspect]
     Active Substance: LEUCOVORIN CALCIUM
     Indication: Adenocarcinoma of colon
     Dosage: UNK
     Dates: start: 201306, end: 201311
  20. LEUCOVORIN CALCIUM [Suspect]
     Active Substance: LEUCOVORIN CALCIUM
     Dosage: UNK (PART OF DE GRAMONT REGIMEN)
     Route: 042
     Dates: start: 2015, end: 2015
  21. LEUCOVORIN CALCIUM [Suspect]
     Active Substance: LEUCOVORIN CALCIUM
     Dosage: UNK
     Route: 041
     Dates: start: 2013
  22. LEUCOVORIN CALCIUM [Suspect]
     Active Substance: LEUCOVORIN CALCIUM
     Dosage: UNK (PART OF DE GRAMONT REGIMEN)
     Route: 041
     Dates: start: 2015, end: 2015
  23. IPILIMUMAB [Suspect]
     Active Substance: IPILIMUMAB
     Indication: Adenocarcinoma of colon
     Dosage: UNK
     Dates: start: 201809, end: 201907
  24. LEUCOVORIN [Suspect]
     Active Substance: LEUCOVORIN
     Indication: Adenocarcinoma of colon
     Dosage: UNK
     Route: 042
     Dates: start: 2015, end: 2015

REACTIONS (14)
  - Wound complication [Fatal]
  - Ileal perforation [Fatal]
  - Soft tissue infection [Fatal]
  - Fistula of small intestine [Fatal]
  - Back injury [Fatal]
  - Lactobacillus infection [Unknown]
  - Klebsiella infection [Unknown]
  - Staphylococcal infection [Unknown]
  - Escherichia infection [Unknown]
  - Streptococcal infection [Unknown]
  - Staphylococcal sepsis [Unknown]
  - Device related sepsis [Unknown]
  - Inflammation [Unknown]
  - Gastrointestinal toxicity [Unknown]

NARRATIVE: CASE EVENT DATE: 20190101
